FAERS Safety Report 5416382-8 (Version None)
Quarter: 2007Q3

REPORT INFORMATION
  Report Type: 
  Country: None (occurrence: None)
  Receive Date: 20070718
  Receipt Date: 20060712
  Transmission Date: 20080115
  Serious: Yes (Hospitalization, Other)
  Sender: FDA-Public Use
  Company Number: 2006022760

PATIENT
  Age: 67 Year
  Sex: Female
  Weight: 70.7611 kg

DRUGS (6)
  1. CELEBREX [Suspect]
     Indication: ARTHRITIS
     Dosage: 200 MG (200 MG, 1 IN 1 D)
     Dates: start: 19980101
  2. CELEBREX [Suspect]
     Indication: PAIN
     Dosage: 200 MG (200 MG, 1 IN 1 D)
     Dates: start: 19980101
  3. PREMARIN [Concomitant]
  4. PROPANOLOL (PROPANOLOL) [Concomitant]
  5. VERAPAMIL [Concomitant]
  6. HYDROCHLOROTHIAZIDE [Concomitant]

REACTIONS (1)
  - MYOCARDIAL INFARCTION [None]
